FAERS Safety Report 6792442-4 (Version None)
Quarter: 2010Q2

REPORT INFORMATION
  Report Type: 
  Country: None (occurrence: None)
  Receive Date: 20100624
  Receipt Date: 20100618
  Transmission Date: 20101027
  Serious: Yes (Hospitalization, Other)
  Sender: FDA-Public Use
  Company Number: US-MERCK-0908USA04126

PATIENT
  Age: 67 Year
  Sex: Male

DRUGS (4)
  1. FOSAMAX [Suspect]
     Indication: OSTEOPOROSIS
     Route: 048
     Dates: start: 20020201, end: 20060401
  2. FOSAMAX [Suspect]
     Route: 048
     Dates: start: 20030101, end: 20060101
  3. PREDNISONE [Concomitant]
     Indication: RHEUMATOID ARTHRITIS
     Route: 065
     Dates: start: 20040101
  4. ACTONEL [Suspect]
     Indication: OSTEOPOROSIS
     Route: 065
     Dates: start: 20060501, end: 20080301

REACTIONS (47)
  - ABSCESS [None]
  - ADVERSE DRUG REACTION [None]
  - ANKLE FRACTURE [None]
  - ANXIETY [None]
  - ARTHRALGIA [None]
  - ATRIOVENTRICULAR BLOCK [None]
  - BENIGN PROSTATIC HYPERPLASIA [None]
  - BIFASCICULAR BLOCK [None]
  - BONE DENSITY DECREASED [None]
  - BRONCHITIS [None]
  - CARDIAC DISORDER [None]
  - CARDIOVASCULAR DISORDER [None]
  - CATARACT [None]
  - CONDUCTIVE DEAFNESS [None]
  - CORONARY ARTERY DISEASE [None]
  - DENTAL CARIES [None]
  - DILATATION ATRIAL [None]
  - DRUG HYPERSENSITIVITY [None]
  - DYSGEUSIA [None]
  - EMPHYSEMA [None]
  - EXOSTOSIS [None]
  - FOOD POISONING [None]
  - GASTROENTERITIS [None]
  - GINGIVAL BLEEDING [None]
  - GINGIVAL DISORDER [None]
  - HYPOVOLAEMIA [None]
  - IMPAIRED HEALING [None]
  - INFECTION [None]
  - LEFT VENTRICULAR HYPERTROPHY [None]
  - LEUKOCYTOSIS [None]
  - NASAL OEDEMA [None]
  - NASAL SEPTUM DEVIATION [None]
  - NODULE [None]
  - OCCULT BLOOD POSITIVE [None]
  - ORAL DISORDER [None]
  - ORAL TORUS [None]
  - OSTEONECROSIS OF JAW [None]
  - OTITIS MEDIA [None]
  - PAIN [None]
  - PERIODONTAL DISEASE [None]
  - PNEUMONIA ASPIRATION [None]
  - RESPIRATORY DISORDER [None]
  - SYNCOPE [None]
  - TEMPOROMANDIBULAR JOINT SYNDROME [None]
  - TOOTH DISORDER [None]
  - TOOTH FRACTURE [None]
  - VASCULAR CALCIFICATION [None]
